FAERS Safety Report 5156717-7 (Version None)
Quarter: 2006Q4

REPORT INFORMATION
  Report Type: 
  Country: None (occurrence: None)
  Receive Date: 20061115
  Receipt Date: 20061102
  Transmission Date: 20070319
  Serious: Yes (Other)
  Sender: FDA-Public Use
  Company Number: 2006107379

PATIENT
  Age: 58 Year
  Sex: Male

DRUGS (3)
  1. LYRICA [Suspect]
     Indication: PAIN
     Dosage: 50 MG (50 MG, 1 IN 1 D)
     Dates: start: 20060801
  2. SYNTHROID [Concomitant]
  3. PREMARIN [Concomitant]

REACTIONS (4)
  - CONDITION AGGRAVATED [None]
  - HEART RATE INCREASED [None]
  - PAIN [None]
  - VISION BLURRED [None]
